FAERS Safety Report 5522671-9 (Version None)
Quarter: 2007Q4

REPORT INFORMATION
  Report Type: 
  Country: None (occurrence: None)
  Receive Date: 20071120
  Receipt Date: 20070812
  Transmission Date: 20080405
  Serious: Yes (Death, Other)
  Sender: FDA-Public Use
  Company Number: US-SHR-US-2007-042541

PATIENT

DRUGS (3)
  1. CAMPATH [Suspect]
  2. FLUDARA [Suspect]
     Route: 042
  3. RITUXAN [Suspect]
     Route: 042

REACTIONS (4)
  - ACUTE RESPIRATORY DISTRESS SYNDROME [None]
  - CYTOMEGALOVIRUS TEST [None]
  - PNEUMOCYSTIS JIROVECI INFECTION [None]
  - RENAL FAILURE [None]
